FAERS Safety Report 13503140 (Version 1)
Quarter: 2017Q2

REPORT INFORMATION
  Report Type: Spontaneous
  Country: US (occurrence: US)
  Receive Date: 20170501
  Receipt Date: 20170501
  Transmission Date: 20170830
  Serious: Yes (Other)
  Sender: FDA-Public Use
  Company Number: None

PATIENT
  Age: 51 Year
  Sex: Female

DRUGS (1)
  1. AMPYRA [Suspect]
     Active Substance: DALFAMPRIDINE
     Indication: MULTIPLE SCLEROSIS
     Route: 048
     Dates: start: 20170322

REACTIONS (7)
  - C-reactive protein increased [None]
  - Eosinophil count increased [None]
  - Haemoglobin decreased [None]
  - Red blood cell sedimentation rate increased [None]
  - Aspartate aminotransferase decreased [None]
  - Haematocrit decreased [None]
  - Monocyte count increased [None]

NARRATIVE: CASE EVENT DATE: 20170414
